FAERS Safety Report 5612577-9 (Version None)
Quarter: 2008Q1

REPORT INFORMATION
  Report Type: 
  Country: None (occurrence: None)
  Receive Date: 20080204
  Receipt Date: 20080124
  Transmission Date: 20080703
  Serious: Yes (Hospitalization, Congenital Anomaly)
  Sender: FDA-Public Use
  Company Number: A0695259A

PATIENT
  Sex: Male
  Weight: 3.6 kg

DRUGS (3)
  1. PAXIL [Suspect]
     Indication: DEPRESSION
     Dosage: 40MG PER DAY
     Dates: start: 19960101, end: 20040101
  2. PRENATAL VITAMINS [Concomitant]
  3. TYLENOL [Concomitant]

REACTIONS (24)
  - AORTIC STENOSIS [None]
  - AORTIC VALVE INCOMPETENCE [None]
  - CARDIAC MURMUR [None]
  - CHEST PAIN [None]
  - CONGENITAL ANOMALY [None]
  - CYANOSIS [None]
  - DECREASED ACTIVITY [None]
  - DILATATION VENTRICULAR [None]
  - DRUG EXPOSURE DURING PREGNANCY [None]
  - DYSPNOEA [None]
  - EATING DISORDER [None]
  - FAILURE TO THRIVE [None]
  - FATIGUE [None]
  - HAEMATOMA [None]
  - HYPOTENSION [None]
  - HYPOXIA [None]
  - MALAISE [None]
  - PALLOR [None]
  - PATENT DUCTUS ARTERIOSUS [None]
  - PERICARDIAL EFFUSION [None]
  - PLEURAL EFFUSION [None]
  - RESPIRATORY DISTRESS [None]
  - TACHYPNOEA [None]
  - TRICUSPID VALVE INCOMPETENCE [None]
